FAERS Safety Report 5272259-2 (Version None)
Quarter: 2007Q1

REPORT INFORMATION
  Report Type: 
  Country: None (occurrence: None)
  Receive Date: 20070319
  Receipt Date: 20070308
  Transmission Date: 20070707
  Serious: Yes (Hospitalization, Other)
  Sender: FDA-Public Use
  Company Number: 231818K07USA

PATIENT
  Age: 50 Year
  Sex: Female

DRUGS (3)
  1. REBIF [Suspect]
     Indication: MULTIPLE SCLEROSIS
     Dosage: 44 MCG, 3 IN 1 WEEKS, SUBCUTANEOUS
     Route: 058
     Dates: start: 20050721, end: 20060801
  2. UNIRETIC (MOEXIPRIL) [Concomitant]
  3. PROVIGIL [Concomitant]

REACTIONS (4)
  - ASTHENIA [None]
  - HYPERSENSITIVITY [None]
  - HYPOAESTHESIA [None]
  - SARCOIDOSIS [None]
